FAERS Safety Report 21764436 (Version 2)
Quarter: 2023Q1

REPORT INFORMATION
  Report Type: Report from Study
  Country: US (occurrence: None)
  Receive Date: 20221222
  Receipt Date: 20230124
  Transmission Date: 20230418
  Serious: Yes (Death)
  Sender: FDA-Public Use
  Company Number: US-ROCHE-3245834

PATIENT
  Age: 57 Year
  Sex: Female
  Weight: 56.2 kg

DRUGS (26)
  1. AUTOGENE CEVUMERAN [Suspect]
     Active Substance: AUTOGENE CEVUMERAN
     Indication: Metastatic gastric cancer
     Dosage: ON 09/DEC/2020, SHE RECEIVED THE MOST RECENT DOSE OF AUTOGENE CEVUMERAN (RO7198457) (25 UG) PRIOR TO
     Route: 042
     Dates: start: 20180813
  2. ATEZOLIZUMAB [Suspect]
     Active Substance: ATEZOLIZUMAB
     Indication: Metastatic gastric cancer
     Dosage: ON 14/JAN/2021, SHE RECEIVED THE MOST RECENT DOSE OF ATEZOLIZUMAB (1200 MG) PRIOR TO AE AND SAE ONSE
     Route: 041
     Dates: start: 20200826
  3. SYNTHROID [Concomitant]
     Active Substance: LEVOTHYROXINE SODIUM
     Indication: Hypothyroidism
     Route: 048
     Dates: start: 2010
  4. ZOFRAN [Concomitant]
     Active Substance: ONDANSETRON HYDROCHLORIDE
     Indication: Nausea
     Route: 048
     Dates: start: 20150930
  5. INJECTAFER [Concomitant]
     Active Substance: FERRIC CARBOXYMALTOSE
     Route: 042
     Dates: start: 20180924
  6. LYRICA [Concomitant]
     Active Substance: PREGABALIN
     Indication: Arthralgia
     Route: 048
     Dates: start: 20190731
  7. RITALIN [Concomitant]
     Active Substance: METHYLPHENIDATE HYDROCHLORIDE
     Route: 048
     Dates: start: 20190315
  8. TORADOL [Concomitant]
     Active Substance: KETOROLAC TROMETHAMINE
     Indication: Arthralgia
     Route: 030
     Dates: start: 20190730
  9. DILAUDID [Concomitant]
     Active Substance: HYDROMORPHONE HYDROCHLORIDE
     Indication: Medical device pain
     Route: 048
     Dates: start: 20190827
  10. DILAUDID [Concomitant]
     Active Substance: HYDROMORPHONE HYDROCHLORIDE
     Indication: Cancer pain
     Route: 048
     Dates: start: 20200401
  11. IRON [Concomitant]
     Active Substance: IRON
     Indication: Anaemia
     Route: 048
     Dates: start: 20190827
  12. MIRTAZAPINE [Concomitant]
     Active Substance: MIRTAZAPINE
     Indication: Decreased appetite
     Route: 048
     Dates: start: 20200121
  13. MIRTAZAPINE [Concomitant]
     Active Substance: MIRTAZAPINE
     Indication: Depression
  14. MIRTAZAPINE [Concomitant]
     Active Substance: MIRTAZAPINE
     Indication: Insomnia
  15. TIZANIDINE [Concomitant]
     Active Substance: TIZANIDINE
     Indication: Muscle spasms
     Route: 048
     Dates: start: 20200402
  16. NALOXONE [Concomitant]
     Active Substance: NALOXONE
     Dates: start: 20200409
  17. PREDNISONE [Concomitant]
     Active Substance: PREDNISONE
     Indication: Medical device pain
     Route: 048
     Dates: start: 20200401
  18. LEVOFLOXACIN [Concomitant]
     Active Substance: LEVOFLOXACIN
     Indication: White blood cell count increased
     Route: 042
     Dates: start: 20210114
  19. SOLU-MEDROL [Concomitant]
     Active Substance: METHYLPREDNISOLONE SODIUM SUCCINATE
     Indication: Pneumonitis
     Route: 042
     Dates: start: 20210115, end: 20210117
  20. TOCILIZUMAB [Concomitant]
     Active Substance: TOCILIZUMAB
     Indication: Cytokine release syndrome
     Route: 042
     Dates: start: 20210115, end: 20210115
  21. DECADRON [Concomitant]
     Active Substance: DEXAMETHASONE
     Indication: Pneumonitis
     Route: 042
     Dates: start: 20210115, end: 20210115
  22. VANCOMYCIN [Concomitant]
     Active Substance: VANCOMYCIN
     Indication: Pneumonitis
     Route: 042
     Dates: start: 20210114, end: 20210118
  23. ZOSYN [Concomitant]
     Active Substance: PIPERACILLIN SODIUM\TAZOBACTAM SODIUM
     Indication: Pneumonitis
     Route: 042
     Dates: start: 20210115, end: 20210118
  24. OXYGEN [Concomitant]
     Active Substance: OXYGEN
     Indication: Hypoxia
     Dosage: 2 OTHER
     Route: 055
     Dates: start: 20210114, end: 20210114
  25. OXYGEN [Concomitant]
     Active Substance: OXYGEN
     Indication: Tachycardia
     Dosage: 2 OTHER
     Route: 055
     Dates: start: 20210115
  26. OXYGEN [Concomitant]
     Active Substance: OXYGEN
     Dosage: 30 OTHER
     Route: 055
     Dates: start: 20210114, end: 20210115

REACTIONS (1)
  - Malignant neoplasm progression [Fatal]

NARRATIVE: CASE EVENT DATE: 20210209
